FAERS Safety Report 9743559 (Version 3)
Quarter: 2013Q4

REPORT INFORMATION
  Report Type: Spontaneous
  Country: US (occurrence: US)
  Receive Date: 20131210
  Receipt Date: 20131212
  Transmission Date: 20140711
  Serious: Yes (Other)
  Sender: FDA-Public Use
  Company Number: US-TEVA-381533USA

PATIENT
  Age: 39 Year
  Sex: Female
  Weight: 97.61 kg

DRUGS (1)
  1. PARAGARD 380A [Suspect]
     Indication: CONTRACEPTION
     Route: 015
     Dates: start: 20120215, end: 20130117

REACTIONS (8)
  - Embedded device [Not Recovered/Not Resolved]
  - Medical device complication [Not Recovered/Not Resolved]
  - Vaginal haemorrhage [Unknown]
  - Headache [Unknown]
  - Device expulsion [Recovered/Resolved]
  - Menstruation delayed [Recovered/Resolved]
  - Dysmenorrhoea [Recovered/Resolved]
  - Vulvovaginal discomfort [Unknown]
